FAERS Safety Report 21004221 (Version 1)
Quarter: 2022Q2

REPORT INFORMATION
  Report Type: Spontaneous
  Country: US (occurrence: US)
  Receive Date: 20220624
  Receipt Date: 20220624
  Transmission Date: 20220721
  Serious: No
  Sender: FDA-Public Use
  Company Number: US-AVEO ONCOLOGY-2022-AVEO-US000080

PATIENT

DRUGS (14)
  1. FOTIVDA [Suspect]
     Active Substance: TIVOZANIB HYDROCHLORIDE
     Indication: Renal cell carcinoma
     Dosage: 1.34 MG, DAILY FOR 21 DAYS, THEN 7 DAYS OFF
     Route: 048
     Dates: start: 20220210, end: 20220311
  2. ALPRAZOLAM [Concomitant]
     Active Substance: ALPRAZOLAM
  3. AMMONIUM LACTATE [Concomitant]
     Active Substance: AMMONIUM LACTATE
  4. DICLOFENAC SODIUM [Concomitant]
     Active Substance: DICLOFENAC SODIUM
  5. DICYCLOMINE [Concomitant]
     Active Substance: DICYCLOMINE HYDROCHLORIDE
  6. INSULIN GLARGINE [Concomitant]
     Active Substance: INSULIN GLARGINE
  7. HUMALOG [Concomitant]
     Active Substance: INSULIN LISPRO
  8. LEVOTHYROXINE [Concomitant]
     Active Substance: LEVOTHYROXINE
  9. LISINOPRIL [Concomitant]
     Active Substance: LISINOPRIL
  10. METFORMIN [Concomitant]
     Active Substance: METFORMIN HYDROCHLORIDE
  11. MIRALAX [Concomitant]
     Active Substance: POLYETHYLENE GLYCOL 3350
  12. PRAVASTATIN [Concomitant]
     Active Substance: PRAVASTATIN
  13. SERTRALINE [Concomitant]
     Active Substance: SERTRALINE HYDROCHLORIDE
  14. TRAMADOL [Concomitant]
     Active Substance: TRAMADOL

REACTIONS (3)
  - Dizziness [Unknown]
  - Aphonia [Unknown]
  - Visual impairment [Unknown]
